FAERS Safety Report 6984055-6 (Version None)
Quarter: 2010Q3

REPORT INFORMATION
  Report Type: 
  Country: None (occurrence: None)
  Receive Date: 20100915
  Receipt Date: 20090508
  Transmission Date: 20110219
  Serious: No
  Sender: FDA-Public Use
  Company Number: US-WYE-H09305409

PATIENT
  Sex: Female
  Weight: 76.27 kg

DRUGS (1)
  1. ADVIL LIQUI-GELS [Suspect]
     Indication: HEADACHE
     Dosage: 2 CAPSULES X 1
     Route: 048
     Dates: start: 20090408, end: 20090408

REACTIONS (2)
  - CONDITION AGGRAVATED [None]
  - GLUCOSE TOLERANCE IMPAIRED [None]
